FAERS Safety Report 7541898-8 (Version None)
Quarter: 2011Q2

REPORT INFORMATION
  Report Type: 
  Country: None (occurrence: None)
  Receive Date: 20110524
  Receipt Date: 20110324
  Transmission Date: 20111010
  Serious: No
  Sender: FDA-Public Use
  Company Number: 029916

PATIENT
  Sex: Female
  Weight: 56.7 kg

DRUGS (3)
  1. CIMZIA [Suspect]
     Indication: RHEUMATOID ARTHRITIS
     Dosage: 400 MG, 2 SHOTS SUBCUTANEOUS
     Route: 058
     Dates: start: 20110315
  2. IBUPROFEN [Concomitant]
  3. FISH OIL [Concomitant]

REACTIONS (4)
  - CHILLS [None]
  - FLATULENCE [None]
  - NAUSEA [None]
  - NASOPHARYNGITIS [None]
